FAERS Safety Report 7071110-8 (Version None)
Quarter: 2010Q4

REPORT INFORMATION
  Report Type: 
  Country: None (occurrence: None)
  Receive Date: 20101029
  Receipt Date: 20101026
  Transmission Date: 20110411
  Serious: No
  Sender: FDA-Public Use
  Company Number: US-PFIZER INC-2010118263

PATIENT
  Sex: Female
  Weight: 74.8 kg

DRUGS (2)
  1. LIPITOR [Suspect]
     Dosage: 40 MG, 1X/DAY
     Route: 048
     Dates: start: 20091201, end: 20100101
  2. METFORMIN HYDROCHLORIDE/SITAGLIPTIN [Concomitant]

REACTIONS (2)
  - ALOPECIA [None]
  - TRICHORRHEXIS [None]
